FAERS Safety Report 5786863-6 (Version None)
Quarter: 2008Q2

REPORT INFORMATION
  Report Type: 
  Country: None (occurrence: None)
  Receive Date: 20080625
  Receipt Date: 20080620
  Transmission Date: 20081010
  Serious: Yes (Other)
  Sender: FDA-Public Use
  Company Number: IT-BAYER-200820902GPV

PATIENT
  Age: 39 Year
  Sex: Female

DRUGS (2)
  1. AVELOX [Suspect]
     Indication: BRONCHIECTASIS
     Dosage: TOTAL DAILY DOSE: 400 MG  UNIT DOSE: 400 MG
     Route: 048
     Dates: start: 20080330, end: 20080330
  2. RAPTIVA [Concomitant]
     Indication: PSORIASIS
     Dosage: TOTAL DAILY DOSE: 1 MG/KG
     Route: 058
     Dates: start: 20071001, end: 20080430

REACTIONS (2)
  - HYPOVOLAEMIC SHOCK [None]
  - URTICARIA [None]
